FAERS Safety Report 5661228-6 (Version None)
Quarter: 2008Q1

REPORT INFORMATION
  Report Type: 
  Country: None (occurrence: None)
  Receive Date: 20080312
  Receipt Date: 20080306
  Transmission Date: 20080703
  Serious: Yes (Other)
  Sender: FDA-Public Use
  Company Number: A0714347A

PATIENT
  Age: 64 Year
  Sex: Male

DRUGS (6)
  1. LAPATINIB [Suspect]
     Dosage: 1500MG PER DAY
     Route: 048
     Dates: start: 20070313
  2. TYLENOL (CAPLET) [Suspect]
  3. ONDANSETRON [Concomitant]
     Dosage: 8MG PER DAY
     Dates: start: 20071207
  4. SENNA [Concomitant]
     Dosage: 8.5MG PER DAY
     Dates: start: 20071205
  5. OXYCODONE HCL [Concomitant]
     Dates: start: 20071206
  6. ENTECAVIR [Concomitant]

REACTIONS (3)
  - ALANINE AMINOTRANSFERASE INCREASED [None]
  - ASPARTATE AMINOTRANSFERASE INCREASED [None]
  - BLOOD ALKALINE PHOSPHATASE INCREASED [None]
